FAERS Safety Report 7085153-1 (Version None)
Quarter: 2010Q4

REPORT INFORMATION
  Report Type: 
  Country: None (occurrence: None)
  Receive Date: 20101027
  Receipt Date: 20101022
  Transmission Date: 20110411
  Serious: Yes (Hospitalization)
  Sender: FDA-Public Use
  Company Number: 2010MA002726

PATIENT
  Age: 36 Year
  Sex: Male

DRUGS (2)
  1. ACYCLOVIR [Suspect]
     Indication: VIITH NERVE PARALYSIS
     Dosage: 1000 MG; QD; PO
     Route: 048
     Dates: start: 20100907, end: 20100908
  2. PREDNISOLONE [Concomitant]

REACTIONS (5)
  - ABDOMINAL PAIN [None]
  - ACIDOSIS [None]
  - INTESTINAL OBSTRUCTION [None]
  - MALAISE [None]
  - VOMITING [None]
